FAERS Safety Report 6774159-5 (Version None)
Quarter: 2010Q2

REPORT INFORMATION
  Report Type: 
  Country: None (occurrence: None)
  Receive Date: 20100617
  Receipt Date: 20100608
  Transmission Date: 20101027
  Serious: Yes (Hospitalization, Other)
  Sender: FDA-Public Use
  Company Number: US-JNJFOC-20100209432

PATIENT
  Sex: Male
  Weight: 88.45 kg

DRUGS (4)
  1. LEVAQUIN [Suspect]
     Indication: PNEUMONIA
     Route: 048
  2. LEVAQUIN [Suspect]
     Indication: BACTERIAL INFECTION
     Route: 048
  3. PREDNISONE [Suspect]
     Indication: ANTIINFLAMMATORY THERAPY
     Route: 065
  4. METHOTREXATE [Concomitant]
     Indication: ARTHRITIS

REACTIONS (2)
  - RHEUMATOID ARTHRITIS [None]
  - TENDON RUPTURE [None]
